FAERS Safety Report 7739858-7 (Version None)
Quarter: 2011Q3

REPORT INFORMATION
  Report Type: 
  Country: None (occurrence: None)
  Receive Date: 20110909
  Receipt Date: 20110905
  Transmission Date: 20111222
  Serious: Yes (Other)
  Sender: FDA-Public Use
  Company Number: PHHY2011AU79806

PATIENT
  Sex: Male

DRUGS (1)
  1. CLOZAPINE [Suspect]

REACTIONS (5)
  - DROOLING [None]
  - ACCIDENTAL EXPOSURE [None]
  - INFLUENZA LIKE ILLNESS [None]
  - DRY MOUTH [None]
  - CHEST PAIN [None]
